FAERS Safety Report 17826342 (Version 1)
Quarter: 2020Q2

REPORT INFORMATION
  Report Type: Spontaneous
  Country: US (occurrence: US)
  Receive Date: 20200526
  Receipt Date: 20200526
  Transmission Date: 20200714
  Serious: Yes (Life-Threatening, Other)
  Sender: FDA-Public Use
  Company Number: US-PFIZER INC-2020205199

PATIENT
  Age: 56 Year
  Sex: Male

DRUGS (2)
  1. ROPIVACAINE HYDROCHLORIDE. [Suspect]
     Active Substance: ROPIVACAINE HYDROCHLORIDE
     Indication: SPINAL OSTEOARTHRITIS
     Dosage: 10 MG (TOTAL OF 5 ML, INFUSION)
     Route: 008
  2. DEPO-MEDROL [Suspect]
     Active Substance: METHYLPREDNISOLONE ACETATE
     Indication: SPINAL OSTEOARTHRITIS
     Dosage: 120 MG (INFUSION)
     Route: 008

REACTIONS (6)
  - Spinal epidural haematoma [Recovered/Resolved]
  - Brown-Sequard syndrome [Recovered/Resolved]
  - Hemiplegia [Recovered/Resolved]
  - Hemianaesthesia [Recovered/Resolved]
  - Horner^s syndrome [Recovered/Resolved]
  - Flushing [Recovered/Resolved]
